FAERS Safety Report 9496502 (Version 1)
Quarter: 2013Q3

REPORT INFORMATION
  Report Type: Report from Study
  Country: AR (occurrence: AR)
  Receive Date: 20130904
  Receipt Date: 20130904
  Transmission Date: 20140515
  Serious: Yes (Hospitalization)
  Sender: FDA-Public Use
  Company Number: PHHY2013AR096137

PATIENT
  Age: 79 Year
  Sex: Male

DRUGS (1)
  1. DIOVAN D [Suspect]
     Indication: BLOOD PRESSURE ABNORMAL
     Dosage: 1 DF (VAL 160 MG, AMLO 10 MG), PER ADY
     Route: 048

REACTIONS (3)
  - Chronic obstructive pulmonary disease [Recovering/Resolving]
  - Dyspnoea [Recovering/Resolving]
  - Hypoxia [Recovering/Resolving]
